FAERS Safety Report 5034045-8 (Version None)
Quarter: 2006Q2

REPORT INFORMATION
  Report Type: 
  Country: None (occurrence: None)
  Receive Date: 20060621
  Receipt Date: 20060515
  Transmission Date: 20061013
  Serious: Yes (Other)
  Sender: FDA-Public Use
  Company Number: HQWYE367417MAY06

PATIENT
  Age: 82 Year
  Sex: Female

DRUGS (5)
  1. CORDARONE [Suspect]
     Indication: ATRIAL FIBRILLATION
     Dosage: 200 MG 1X PER 1 DAY, ORAL
     Route: 048
     Dates: start: 19950101, end: 20030101
  2. PACERONE [Suspect]
     Indication: ATRIAL FIBRILLATION
     Dosage: 200 MG 1X PER 1 DAY, ORAL
     Route: 048
     Dates: start: 20030101
  3. TIAZAC [Concomitant]
  4. DIOVAN [Concomitant]
  5. ASPIRIN [Concomitant]

REACTIONS (2)
  - CORNEAL DYSTROPHY [None]
  - HYPOAESTHESIA [None]
